FAERS Safety Report 19445383 (Version 1)
Quarter: 2021Q2

REPORT INFORMATION
  Report Type: Spontaneous
  Country: JP (occurrence: JP)
  Receive Date: 20210622
  Receipt Date: 20210622
  Transmission Date: 20210717
  Serious: Yes (Death)
  Sender: FDA-Public Use
  Company Number: JP-TAKEDA-2021TJP041963

PATIENT
  Age: 3 Year
  Sex: Female

DRUGS (1)
  1. VPRIV [Suspect]
     Active Substance: VELAGLUCERASE ALFA
     Indication: GAUCHER^S DISEASE
     Dosage: 420 INTERNATIONAL UNIT
     Route: 042

REACTIONS (1)
  - Gaucher^s disease [Fatal]

NARRATIVE: CASE EVENT DATE: 20210615
